FAERS Safety Report 5308062-4 (Version None)
Quarter: 2007Q1

REPORT INFORMATION
  Report Type: 
  Country: None (occurrence: None)
  Receive Date: 20070130
  Receipt Date: 20060619
  Transmission Date: 20070707
  Serious: Yes (Death)
  Sender: FDA-Public Use
  Company Number: 9039997-2006-00044

PATIENT

DRUGS (1)
  1. 5-AMINOLEVULINIC ACID [Suspect]
     Indication: MALIGNANT GLIOMA
     Dosage: 20 MG/KG,ONCE,ORAL
     Route: 048

REACTIONS (1)
  - DEATH [None]
